FAERS Safety Report 13334365 (Version 2)
Quarter: 2017Q2

REPORT INFORMATION
  Report Type: Spontaneous
  Country: MX (occurrence: MX)
  Receive Date: 20170314
  Receipt Date: 20170420
  Transmission Date: 20170830
  Serious: Yes (Other)
  Sender: FDA-Public Use
  Company Number: MX-009507513-1703MEX004699

PATIENT
  Age: 62 Year
  Sex: Male

DRUGS (7)
  1. IMIPRAMINE [Suspect]
     Active Substance: IMIPRAMINE
     Dosage: 75 MG/D, QD
  2. AMANTADINE. [Suspect]
     Active Substance: AMANTADINE HYDROCHLORIDE
     Dosage: 100 MG/D, QD
  3. CARBIDOPA (+) LEVODOPA [Suspect]
     Active Substance: CARBIDOPA\LEVODOPA
     Indication: PARKINSON^S DISEASE
     Dosage: 750 MG/D, QD
  4. CARBIDOPA (+) LEVODOPA [Suspect]
     Active Substance: CARBIDOPA\LEVODOPA
     Dosage: 1 G/D, QD
  5. PRAMIPEXOLE. [Suspect]
     Active Substance: PRAMIPEXOLE
     Dosage: 3MG/D, QD
  6. PRAMIPEXOLE. [Suspect]
     Active Substance: PRAMIPEXOLE
     Dosage: 4.5 MG/D, QD
  7. AMANTADINE. [Suspect]
     Active Substance: AMANTADINE HYDROCHLORIDE
     Dosage: 600 MG/D, QD

REACTIONS (2)
  - Adverse event [Recovered/Resolved]
  - Somatic delusion [Recovered/Resolved]
